FAERS Safety Report 7673485-5 (Version None)
Quarter: 2011Q3

REPORT INFORMATION
  Report Type: 
  Country: None (occurrence: None)
  Receive Date: 20110810
  Receipt Date: 20110808
  Transmission Date: 20111222
  Serious: No
  Sender: FDA-Public Use
  Company Number: US-PFIZER INC-2011181791

PATIENT
  Sex: Female
  Weight: 86.621 kg

DRUGS (9)
  1. ADVIL CONGESTION RELIEF [Suspect]
     Indication: INFLUENZA
  2. ADVIL CONGESTION RELIEF [Suspect]
     Indication: NASOPHARYNGITIS
     Dosage: DAILY
     Dates: start: 20100101, end: 20101201
  3. SIMVASTATIN [Concomitant]
     Indication: BLOOD CHOLESTEROL INCREASED
     Dosage: 20 MG, DAILY
  4. METFORMIN [Concomitant]
     Indication: DIABETES MELLITUS
     Dosage: 1000 MG, 2X/DAY
  5. FUROSEMIDE [Concomitant]
     Indication: DIURETIC THERAPY
     Dosage: 20 MG, DAILY
  6. MELOXICAM [Concomitant]
     Indication: JOINT STIFFNESS
     Dosage: 15 MG, DAILY
  7. LEVOTHYROXINE [Concomitant]
     Indication: THYROID DISORDER
     Dosage: 0.1 MG, DAILY
  8. LISINOPRIL [Concomitant]
     Indication: HYPERTENSION
     Dosage: 5 MG, DAILY
  9. MELOXICAM [Concomitant]
     Indication: ARTHRITIS

REACTIONS (4)
  - ERYTHEMA [None]
  - DRUG HYPERSENSITIVITY [None]
  - URTICARIA [None]
  - SWELLING FACE [None]
